FAERS Safety Report 25703658 (Version 1)
Quarter: 2025Q3

REPORT INFORMATION
  Report Type: Spontaneous
  Country: US (occurrence: US)
  Receive Date: 20250820
  Receipt Date: 20250820
  Transmission Date: 20251020
  Serious: No
  Sender: RANBAXY
  Company Number: US-SUN PHARMACEUTICAL INDUSTRIES LTD-2024R1-463240

PATIENT
  Age: 84 Year
  Sex: Male

DRUGS (23)
  1. BACTRIM [Suspect]
     Active Substance: SULFAMETHOXAZOLE\TRIMETHOPRIM
     Indication: Wound
     Route: 065
  2. CABOMETYX [Suspect]
     Active Substance: CABOZANTINIB S-MALATE
     Indication: Renal cancer
     Dosage: 40 MILLIGRAM, QD
     Route: 048
  3. CABOMETYX [Suspect]
     Active Substance: CABOZANTINIB S-MALATE
     Indication: Lung disorder
  4. CALCIUM [Concomitant]
     Active Substance: CALCIUM
     Indication: Product used for unknown indication
     Route: 065
  5. COENZYME Q10 [Concomitant]
     Active Substance: DIETARY SUPPLEMENT\UBIDECARENONE
     Indication: Product used for unknown indication
     Route: 065
  6. DORZOLAMIDE [Concomitant]
     Active Substance: DORZOLAMIDE
     Indication: Product used for unknown indication
     Route: 065
  7. FLAXSEED [Concomitant]
     Active Substance: FLAX SEED
     Indication: Product used for unknown indication
     Route: 065
  8. FINASTERIDE [Concomitant]
     Active Substance: FINASTERIDE
     Indication: Product used for unknown indication
     Route: 065
  9. GARLIC OIL [Concomitant]
     Active Substance: GARLIC OIL
     Indication: Product used for unknown indication
     Route: 065
  10. HYDRALAZINE HCL [Concomitant]
     Active Substance: HYDRALAZINE HYDROCHLORIDE
     Indication: Product used for unknown indication
     Route: 065
  11. LATANOPROST [Concomitant]
     Active Substance: LATANOPROST
     Indication: Product used for unknown indication
     Route: 065
  12. LEVOTHYROXINE [Concomitant]
     Active Substance: LEVOTHYROXINE
     Indication: Product used for unknown indication
     Route: 065
  13. Losartan k/hctz [Concomitant]
     Indication: Product used for unknown indication
     Route: 065
  14. LOVASTATIN [Concomitant]
     Active Substance: LOVASTATIN
     Indication: Product used for unknown indication
     Route: 065
  15. VITAMINS [Concomitant]
     Active Substance: VITAMINS
     Indication: Product used for unknown indication
     Route: 065
  16. NIACIN [Concomitant]
     Active Substance: NIACIN
     Indication: Product used for unknown indication
     Route: 065
  17. NOVOLOG [Concomitant]
     Active Substance: INSULIN ASPART
     Indication: Product used for unknown indication
     Route: 065
  18. PANTOPRAZOLE [Concomitant]
     Active Substance: PANTOPRAZOLE
     Indication: Product used for unknown indication
     Route: 065
  19. TAMSULOSIN [Concomitant]
     Active Substance: TAMSULOSIN
     Indication: Product used for unknown indication
     Route: 065
  20. TRESIBA [Concomitant]
     Active Substance: INSULIN DEGLUDEC
     Indication: Product used for unknown indication
     Route: 065
  21. VIBERZI [Concomitant]
     Active Substance: ELUXADOLINE
     Indication: Product used for unknown indication
     Route: 065
  22. VIIBRYD [Concomitant]
     Active Substance: VILAZODONE HYDROCHLORIDE
     Indication: Product used for unknown indication
     Route: 065
  23. VITAMIN D [Concomitant]
     Active Substance: VITAMIN D NOS
     Indication: Product used for unknown indication
     Route: 065

REACTIONS (5)
  - Drug hypersensitivity [Unknown]
  - Fatigue [Unknown]
  - Somnolence [Unknown]
  - Nausea [Unknown]
  - Therapy cessation [Unknown]
